FAERS Safety Report 7870529-2 (Version None)
Quarter: 2011Q3

REPORT INFORMATION
  Report Type: 
  Country: None (occurrence: None)
  Receive Date: 20110628
  Receipt Date: 20110623
  Transmission Date: 20111222
  Serious: Yes (Other)
  Sender: FDA-Public Use
  Company Number: 2011SP029431

PATIENT
  Age: 40 Year
  Sex: Female

DRUGS (3)
  1. PAXIL [Concomitant]
  2. SAPHRIS [Suspect]
     Indication: BIPOLAR I DISORDER
     Dosage: 5 MG;QD ; 10 MG;QD
     Dates: end: 20110601
  3. ADDERALL 5 [Concomitant]

REACTIONS (3)
  - CONSTIPATION [None]
  - OEDEMA PERIPHERAL [None]
  - GASTRIC DILATATION [None]
